FAERS Safety Report 15486487 (Version 2)
Quarter: 2018Q4

REPORT INFORMATION
  Report Type: Spontaneous
  Country: US (occurrence: US)
  Receive Date: 20181011
  Receipt Date: 20181115
  Transmission Date: 20190205
  Serious: No
  Sender: FDA-Public Use
  Company Number: US-ASTRAZENECA-2009BM02862

PATIENT
  Age: 51 Year
  Sex: Male
  Weight: 112.5 kg

DRUGS (8)
  1. BYETTA [Suspect]
     Active Substance: EXENATIDE
     Indication: TYPE 2 DIABETES MELLITUS
     Route: 058
  2. BYDUREON [Concomitant]
     Active Substance: EXENATIDE
     Dosage: 10.0UG UNKNOWN
     Route: 065
  3. BYETTA [Suspect]
     Active Substance: EXENATIDE
     Indication: TYPE 2 DIABETES MELLITUS
     Route: 058
  4. BYDUREON [Concomitant]
     Active Substance: EXENATIDE
     Dosage: 10.0UG UNKNOWN
     Route: 065
  5. BYDUREON [Concomitant]
     Active Substance: EXENATIDE
     Dosage: 5.0UG UNKNOWN
     Route: 065
  6. METFORMIN [Concomitant]
     Active Substance: METFORMIN HYDROCHLORIDE
     Dosage: UNK
  7. BYDUREON BCISE [Suspect]
     Active Substance: EXENATIDE
     Route: 065
  8. BYDUREON [Concomitant]
     Active Substance: EXENATIDE
     Dosage: 10.0UG UNKNOWN
     Route: 065

REACTIONS (3)
  - Weight decreased [Unknown]
  - Device malfunction [Unknown]
  - Product dose omission [Unknown]
